FAERS Safety Report 6070870-2 (Version None)
Quarter: 2009Q1

REPORT INFORMATION
  Report Type: 
  Country: None (occurrence: None)
  Receive Date: 20090209
  Receipt Date: 20081103
  Transmission Date: 20090719
  Serious: No
  Sender: FDA-Public Use
  Company Number: A0752921A

PATIENT
  Age: 33 Year
  Sex: Female

DRUGS (2)
  1. PAXIL [Suspect]
     Indication: DRUG USE FOR UNKNOWN INDICATION
     Dosage: 20MG UNKNOWN
  2. PRILOSEC [Concomitant]

REACTIONS (2)
  - BREAST DISCHARGE [None]
  - NIPPLE EXUDATE BLOODY [None]
